FAERS Safety Report 8492863-8 (Version None)
Quarter: 2012Q3

REPORT INFORMATION
  Report Type: 
  Country: None (occurrence: None)
  Receive Date: 20120706
  Receipt Date: 20120629
  Transmission Date: 20120928
  Serious: Yes (Hospitalization)
  Sender: FDA-Public Use
  Company Number: DE-JNJFOC-20120113634

PATIENT
  Age: 58 Year
  Sex: Male
  Weight: 77.6 kg

DRUGS (10)
  1. PREDNISONE [Concomitant]
     Dates: start: 20000501
  2. SIMVASTATIN [Concomitant]
  3. GOLIMUMAB [Suspect]
     Indication: RHEUMATOID ARTHRITIS
     Route: 058
     Dates: start: 20101101, end: 20110622
  4. GOLIMUMAB [Suspect]
     Route: 058
     Dates: start: 20110801
  5. ALLOPURINOL [Concomitant]
  6. RAMIPRIL [Concomitant]
  7. METHOTREXATE [Concomitant]
     Indication: MUSCULOSKELETAL PAIN
     Route: 048
     Dates: start: 20040401, end: 20110626
  8. METHOTREXATE [Concomitant]
     Route: 048
     Dates: start: 20110713
  9. METHOTREXATE [Concomitant]
     Route: 048
     Dates: start: 20110501
  10. OMEPRAZOLE [Concomitant]

REACTIONS (1)
  - LOBAR PNEUMONIA [None]
